FAERS Safety Report 10668208 (Version 1)
Quarter: 2014Q4

REPORT INFORMATION
  Report Type: Spontaneous
  Country: US (occurrence: US)
  Receive Date: 20141222
  Receipt Date: 20141222
  Transmission Date: 20150529
  Serious: No
  Sender: FDA-Public Use
  Company Number: US-GLAXOSMITHKLINE-A1069298A

PATIENT

DRUGS (3)
  1. AVODART [Suspect]
     Active Substance: DUTASTERIDE
     Indication: PROSTATOMEGALY
     Dosage: 0.5 MG CAPSULE, 1 DAILY
     Route: 048
     Dates: end: 20140411
  2. AVODART [Suspect]
     Active Substance: DUTASTERIDE
     Dates: end: 20140411
  3. FLOMAX [Suspect]
     Active Substance: TAMSULOSIN HYDROCHLORIDE
     Indication: PRODUCT USED FOR UNKNOWN INDICATION
     Route: 065

REACTIONS (4)
  - Prostatic pain [Not Recovered/Not Resolved]
  - Dysuria [Not Recovered/Not Resolved]
  - Expired product administered [Unknown]
  - Micturition urgency [Not Recovered/Not Resolved]
